FAERS Safety Report 9009102 (Version 2)
Quarter: 2013Q1

REPORT INFORMATION
  Report Type: Spontaneous
  Country: US (occurrence: US)
  Receive Date: 20130111
  Receipt Date: 20130308
  Transmission Date: 20140127
  Serious: Yes (Other)
  Sender: FDA-Public Use
  Company Number: US-AMGEN-USASP2013001536

PATIENT
  Age: 77 Year
  Sex: Female
  Weight: 67.12 kg

DRUGS (4)
  1. ENBREL [Suspect]
     Indication: RHEUMATOID ARTHRITIS
     Dosage: 25 MG, 2 TIMES/WK
     Route: 058
     Dates: start: 19980101, end: 201212
  2. XANAX [Concomitant]
     Dosage: 25 UNK, UNK
  3. METHOTREXATE [Concomitant]
     Dosage: UNK
  4. ARAVA [Concomitant]
     Dosage: UNK

REACTIONS (3)
  - B-cell lymphoma [Not Recovered/Not Resolved]
  - Mass [Unknown]
  - Lymphadenopathy [Unknown]
